FAERS Safety Report 6196723-7 (Version None)
Quarter: 2009Q2

REPORT INFORMATION
  Report Type: 
  Country: None (occurrence: None)
  Receive Date: 20090520
  Receipt Date: 20090512
  Transmission Date: 20091009
  Serious: Yes (Other)
  Sender: FDA-Public Use
  Company Number: JP-MERCK-0905USA01890

PATIENT

DRUGS (1)
  1. PEPCID [Suspect]
     Route: 042

REACTIONS (1)
  - VENTRICULAR FIBRILLATION [None]
